FAERS Safety Report 24925732 (Version 1)
Quarter: 2025Q1

REPORT INFORMATION
  Report Type: Spontaneous
  Country: US (occurrence: US)
  Receive Date: 20250204
  Receipt Date: 20250204
  Transmission Date: 20250409
  Serious: No
  Sender: TAKEDA
  Company Number: US-TAKEDA-2025TUS009749

PATIENT

DRUGS (1)
  1. EOHILIA [Suspect]
     Active Substance: BUDESONIDE
     Indication: Eosinophilic oesophagitis

REACTIONS (1)
  - Drug ineffective [Unknown]

NARRATIVE: CASE EVENT DATE: 20241114
